FAERS Safety Report 18546312 (Version 2)
Quarter: 2022Q1

REPORT INFORMATION
  Report Type: Spontaneous
  Country: US (occurrence: US)
  Receive Date: 20201125
  Receipt Date: 20220209
  Transmission Date: 20220424
  Serious: No
  Sender: FDA-Public Use
  Company Number: US-PFIZER INC-2019109420

PATIENT
  Age: 61 Year
  Sex: Female
  Weight: 51 kg

DRUGS (2)
  1. LYRICA [Suspect]
     Active Substance: PREGABALIN
     Indication: Fibromatosis
     Dosage: 75 MG, 1X/DAY
     Route: 048
  2. LYRICA [Suspect]
     Active Substance: PREGABALIN
     Indication: Fibromyalgia
     Dosage: 150 MG, 1X/DAY
     Route: 048

REACTIONS (3)
  - Pain [Unknown]
  - COVID-19 [Unknown]
  - Fibromyalgia [Unknown]
